FAERS Safety Report 5010529-3 (Version None)
Quarter: 2006Q2

REPORT INFORMATION
  Report Type: 
  Country: None (occurrence: None)
  Receive Date: 20060525
  Receipt Date: 20060519
  Transmission Date: 20061013
  Serious: Yes (Other)
  Sender: FDA-Public Use
  Company Number: PHRM2006FR01634

PATIENT
  Age: 35 Year
  Sex: Female

DRUGS (1)
  1. METHERGINE [Suspect]
     Indication: METRORRHAGIA
     Dosage: 200 DRP, ONCE/SINGLE
     Route: 048
     Dates: start: 20060519, end: 20060519

REACTIONS (3)
  - ACCIDENTAL OVERDOSE [None]
  - DRUG DISPENSING ERROR [None]
  - MALAISE [None]
